FAERS Safety Report 15397193 (Version 1)
Quarter: 2018Q3

REPORT INFORMATION
  Report Type: Other
  Country: US (occurrence: US)
  Receive Date: 20180918
  Receipt Date: 20180918
  Transmission Date: 20181010
  Serious: No
  Sender: FDA-Public Use
  Company Number: US-LEADIANT BIOSCIENCES INC-2018STPI000442

PATIENT
  Sex: Male

DRUGS (4)
  1. MATULANE [Suspect]
     Active Substance: PROCARBAZINE HYDROCHLORIDE
     Indication: BRAIN NEOPLASM MALIGNANT
     Dosage: 2 DF ALTERNATING
     Route: 048
     Dates: start: 20171102
  2. GLEOSTINE [Concomitant]
     Active Substance: LOMUSTINE
  3. MATULANE [Suspect]
     Active Substance: PROCARBAZINE HYDROCHLORIDE
     Dosage: 2 DF ALTERNATING
     Route: 048
     Dates: start: 20171102
  4. ATORVASTATIN [Concomitant]
     Active Substance: ATORVASTATIN

REACTIONS (1)
  - Laboratory test abnormal [Not Recovered/Not Resolved]
